FAERS Safety Report 24001363 (Version 1)
Quarter: 2024Q2

REPORT INFORMATION
  Report Type: Spontaneous
  Country: CA (occurrence: CA)
  Receive Date: 20240621
  Receipt Date: 20240621
  Transmission Date: 20240716
  Serious: Yes (Hospitalization)
  Sender: FDA-Public Use
  Company Number: CA-LUNDBECK-DKLU4000673

PATIENT

DRUGS (1)
  1. VYEPTI [Suspect]
     Active Substance: EPTINEZUMAB-JJMR
     Indication: Product used for unknown indication
     Route: 041
     Dates: start: 20240506

REACTIONS (5)
  - Neurological symptom [Unknown]
  - Muscle twitching [Unknown]
  - Myoclonus [Unknown]
  - Dyskinesia [Unknown]
  - Flushing [Unknown]
